FAERS Safety Report 9352678 (Version 1)
Quarter: 2013Q2

REPORT INFORMATION
  Report Type: Spontaneous
  Country: US (occurrence: US)
  Receive Date: 20130618
  Receipt Date: 20130618
  Transmission Date: 20140414
  Serious: No
  Sender: FDA-Public Use
  Company Number: US-009507513-1306USA006193

PATIENT
  Age: 24 Year
  Sex: Female
  Weight: 66.67 kg

DRUGS (1)
  1. IMPLANON [Suspect]
     Indication: CONTRACEPTION
     Dosage: ONE DOSE PER THREE YEARS
     Route: 059
     Dates: start: 20110920

REACTIONS (1)
  - Amenorrhoea [Recovered/Resolved]
